FAERS Safety Report 15642308 (Version 3)
Quarter: 2019Q2

REPORT INFORMATION
  Report Type: Report from Study
  Country: CO (occurrence: CO)
  Receive Date: 20181121
  Receipt Date: 20190415
  Transmission Date: 20190711
  Serious: Yes (Life-Threatening, Hospitalization, Other)
  Sender: FDA-Public Use
  Company Number: CO-BRISTOL-MYERS SQUIBB COMPANY-BMS-2018-107508

PATIENT
  Age: 55 Year
  Sex: Female

DRUGS (2)
  1. NIVOLUMAB [Suspect]
     Active Substance: NIVOLUMAB
     Indication: RENAL CANCER
     Dosage: 255 MILLIGRAM, Q2WK
     Route: 042
     Dates: start: 20180815, end: 20190319
  2. NIVOLUMAB [Suspect]
     Active Substance: NIVOLUMAB
     Indication: PRODUCT USED FOR UNKNOWN INDICATION
     Dosage: 250 UNK
     Route: 042

REACTIONS (5)
  - Inflammation [Recovering/Resolving]
  - Drug ineffective [Recovered/Resolved]
  - Abdominal pain [Recovering/Resolving]
  - Urinary tract infection [Recovering/Resolving]
  - Malignant neoplasm progression [Recovered/Resolved]

NARRATIVE: CASE EVENT DATE: 20190318
